FAERS Safety Report 12730786 (Version 1)
Quarter: 2016Q3

REPORT INFORMATION
  Report Type: Spontaneous
  Country: US (occurrence: US)
  Receive Date: 20160910
  Receipt Date: 20160910
  Transmission Date: 20161109
  Serious: Yes (Disabling, Other)
  Sender: FDA-Public Use
  Company Number: US-AMGEN-USASP2016120806

PATIENT

DRUGS (1)
  1. PROLIA [Suspect]
     Active Substance: DENOSUMAB
     Indication: OSTEOPOROSIS
     Dosage: UNK
     Route: 065

REACTIONS (20)
  - Spinal pain [Unknown]
  - Chest pain [Unknown]
  - Urinary tract infection [Unknown]
  - Spinal fracture [Unknown]
  - Dizziness [Unknown]
  - Sinusitis [Unknown]
  - Infection [Unknown]
  - Neck pain [Unknown]
  - Back pain [Not Recovered/Not Resolved]
  - Dyspepsia [Unknown]
  - Asthenia [Unknown]
  - Pain in jaw [Unknown]
  - Malaise [Unknown]
  - Decreased immune responsiveness [Unknown]
  - Bone pain [Unknown]
  - Pain [Unknown]
  - Gait disturbance [Unknown]
  - Feeling abnormal [Unknown]
  - Nausea [Unknown]
  - Influenza like illness [Unknown]

NARRATIVE: CASE EVENT DATE: 201408
